FAERS Safety Report 8792786 (Version 3)
Quarter: 2013Q3

REPORT INFORMATION
  Report Type: Report from Study
  Country: JP (occurrence: JP)
  Receive Date: 20120918
  Receipt Date: 20130719
  Transmission Date: 20140515
  Serious: Yes (Hospitalization)
  Sender: FDA-Public Use
  Company Number: JP-VERTEX PHARMACEUTICAL INC.-2012-021222

PATIENT
  Age: 66 Year
  Sex: Female

DRUGS (12)
  1. VX-950 (TELAPREVIR) [Suspect]
     Indication: CHRONIC HEPATITIS C
     Dosage: 2250 MG, QD
     Route: 048
     Dates: start: 20120905, end: 20120908
  2. PREDONINE [Suspect]
     Indication: ADVERSE EVENT
     Dosage: 1 G, QD
     Route: 042
     Dates: start: 20120908, end: 20120908
  3. PEGINTRON [Suspect]
     Indication: CHRONIC HEPATITIS C
     Dosage: 1.5 ?G/KG, QW
     Route: 058
     Dates: start: 20120905, end: 20120908
  4. REBETOL [Suspect]
     Indication: CHRONIC HEPATITIS C
     Dosage: 400 MG, QD
     Route: 048
     Dates: start: 20120905, end: 20120908
  5. BAYASPIRIN [Concomitant]
     Dosage: 100 MG, QD
     Route: 048
  6. BLOPRESS [Concomitant]
     Dosage: 24 MG, QD
     Route: 048
  7. LOCHOL [Concomitant]
     Dosage: 20 MG, QD
     Route: 048
  8. ADALAT CR [Concomitant]
     Dosage: 120 MG, QD
     Route: 048
  9. MAINTATE [Concomitant]
     Dosage: 5 MG, QD
     Route: 048
  10. GASTER D [Concomitant]
     Dosage: UNK
     Route: 048
  11. PROHEPARUM [Concomitant]
     Dosage: 3 DF, QD
     Route: 048
  12. URSO [Concomitant]
     Dosage: 600 MG, QD
     Route: 048
     Dates: start: 20120919

REACTIONS (3)
  - Blood pressure decreased [Recovered/Resolved]
  - Amylase increased [Recovered/Resolved]
  - Renal failure acute [Recovered/Resolved]
